FAERS Safety Report 15843206 (Version 1)
Quarter: 2019Q1

REPORT INFORMATION
  Report Type: Spontaneous
  Country: GB (occurrence: GB)
  Receive Date: 20190118
  Receipt Date: 20190118
  Transmission Date: 20190417
  Serious: Yes (Life-Threatening)
  Sender: FDA-Public Use
  Company Number: GB-PFIZER INC-2019020741

PATIENT
  Age: 33 Year
  Sex: Female
  Weight: 83 kg

DRUGS (2)
  1. SERTRALINE HCL [Suspect]
     Active Substance: SERTRALINE HYDROCHLORIDE
     Dosage: 100 MG, UNK
     Route: 048
     Dates: start: 20180731, end: 20181223
  2. SERTRALINE HCL [Suspect]
     Active Substance: SERTRALINE HYDROCHLORIDE
     Indication: DEPRESSED MOOD
     Dosage: 50 MG, 1X/DAY
     Route: 048
     Dates: start: 20180705, end: 20180730

REACTIONS (2)
  - Suicide attempt [Recovered/Resolved with Sequelae]
  - Withdrawal syndrome [Unknown]

NARRATIVE: CASE EVENT DATE: 20181225
